FAERS Safety Report 24868289 (Version 1)
Quarter: 2025Q1

REPORT INFORMATION
  Report Type: Spontaneous
  Country: US (occurrence: None)
  Receive Date: 20250119
  Receipt Date: 20250119
  Transmission Date: 20250408
  Serious: Yes (Other)
  Sender: FDA-CTU
  Company Number: None

PATIENT
  Age: 60 Year
  Sex: Male
  Weight: 78.75 kg

DRUGS (1)
  1. REPATHA [Suspect]
     Active Substance: EVOLOCUMAB
     Indication: Blood cholesterol increased
     Dosage: 1 INJECTION EVERY 2 WEEKS SUBCUTANEOUS
     Route: 058
     Dates: start: 20240601, end: 20250119

REACTIONS (2)
  - Back pain [None]
  - Tendon rupture [None]

NARRATIVE: CASE EVENT DATE: 20250119
